FAERS Safety Report 21391069 (Version 1)
Quarter: 2022Q3

REPORT INFORMATION
  Report Type: Spontaneous
  Country: IT (occurrence: IT)
  Receive Date: 20220929
  Receipt Date: 20220929
  Transmission Date: 20221026
  Serious: Yes (Death)
  Sender: FDA-Public Use
  Company Number: None

PATIENT
  Age: 79 Year
  Sex: Male
  Weight: 77 kg

DRUGS (3)
  1. CARBOPLATIN [Suspect]
     Active Substance: CARBOPLATIN
     Indication: Squamous cell carcinoma of lung
     Dosage: 195.5 MG, FREQ: 7 D
     Route: 042
     Dates: start: 20211021, end: 20220908
  2. PACLITAXEL [Suspect]
     Active Substance: PACLITAXEL
     Dosage: 115.8 MG, 100MG/16.7ML
     Route: 042
     Dates: start: 20211021, end: 20220908
  3. KEYTRUDA [Suspect]
     Active Substance: PEMBROLIZUMAB
     Indication: Squamous cell carcinoma of lung
     Dosage: 200 MG, FREQ: 21 D
     Route: 042
     Dates: start: 20211021, end: 20220908

REACTIONS (2)
  - Haemolytic anaemia [Fatal]
  - Off label use [Unknown]

NARRATIVE: CASE EVENT DATE: 20211021
